FAERS Safety Report 4391151-9 (Version None)
Quarter: 2004Q2

REPORT INFORMATION
  Report Type: 
  Country: None (occurrence: None)
  Receive Date: 20040621
  Receipt Date: 20031201
  Transmission Date: 20050107
  Serious: Yes (Death)
  Sender: FDA-Public Use
  Company Number: USA-2003-0011606

PATIENT
  Age: 43 Year
  Sex: Female
  Weight: 93 kg

DRUGS (15)
  1. OXYCODONE HCL [Suspect]
  2. NAPROXEN [Suspect]
  3. TRAZODONE HCL [Suspect]
  4. DICLOFENAC SODIUM [Suspect]
  5. PROPOXYPHENE HCL [Suspect]
  6. COGENTIN [Suspect]
  7. VISTARIL [Suspect]
  8. ZYPREXA [Suspect]
  9. SERTRALINE (SERTRALINE) [Suspect]
  10. QUETIAPINE (QUETIAPINE) [Suspect]
  11. TEMAZEPAM [Suspect]
  12. ACETAMINOPHEN [Suspect]
  13. CAFFEINE (CAFFEINE) [Suspect]
  14. NICOTINE [Suspect]
  15. VALPROIC ACID [Suspect]

REACTIONS (1)
  - ACCIDENTAL OVERDOSE [None]
